FAERS Safety Report 18091509 (Version 1)
Quarter: 2020Q3

REPORT INFORMATION
  Report Type: Spontaneous
  Country: US (occurrence: US)
  Receive Date: 20200729
  Receipt Date: 20200729
  Transmission Date: 20201103
  Serious: Yes (Hospitalization)
  Sender: FDA-Public Use
  Company Number: None

PATIENT
  Age: 60 Year
  Sex: Male

DRUGS (1)
  1. OPSUMIT [Suspect]
     Active Substance: MACITENTAN
     Indication: PULMONARY ARTERIAL HYPERTENSION
     Route: 048
     Dates: start: 20160325

REACTIONS (5)
  - Asthenia [None]
  - Pyrexia [None]
  - Tachycardia [None]
  - Septic shock [None]
  - Cardiogenic shock [None]

NARRATIVE: CASE EVENT DATE: 20200711
